FAERS Safety Report 4447531-6 (Version None)
Quarter: 2004Q3

REPORT INFORMATION
  Report Type: 
  Country: None (occurrence: None)
  Receive Date: 20040823
  Receipt Date: 20040604
  Transmission Date: 20050211
  Serious: No
  Sender: FDA-Public Use
  Company Number: PHEH2004US06166

PATIENT
  Age: 78 Year
  Sex: Female

DRUGS (5)
  1. ZELNORM [Suspect]
     Indication: IRRITABLE BOWEL SYNDROME
     Dosage: 6 MG, QD
     Dates: start: 20040520
  2. ZOCOR [Concomitant]
  3. PARACETAMOL [Concomitant]
  4. XANAX [Concomitant]
  5. PAXIL [Concomitant]

REACTIONS (1)
  - FEELING ABNORMAL [None]
